FAERS Safety Report 8006997-5 (Version None)
Quarter: 2011Q4

REPORT INFORMATION
  Report Type: 
  Country: None (occurrence: None)
  Receive Date: 20111227
  Receipt Date: 20111216
  Transmission Date: 20120403
  Serious: No
  Sender: FDA-Public Use
  Company Number: US-B.I. PHARMACEUTICALS,INC./RIDGEFIELD-2011-BP-28317BP

PATIENT
  Sex: Female

DRUGS (9)
  1. ATENOLOL [Concomitant]
     Indication: HYPERTENSION
  2. BUSPAR [Concomitant]
     Indication: ANXIETY
  3. ZANTAC [Concomitant]
     Indication: ULCER
  4. SPIRIVA [Suspect]
     Indication: CHRONIC OBSTRUCTIVE PULMONARY DISEASE
     Dosage: 18 MCG
     Route: 055
     Dates: start: 20080101
  5. TRAMADOL HCL [Concomitant]
     Indication: PAIN
  6. CENTRUM SILVER FOR WOMEN [Concomitant]
     Indication: SUPPLEMENTATION THERAPY
  7. CYMBALTA [Concomitant]
     Indication: DEPRESSION
  8. REGLAN [Concomitant]
     Indication: ABDOMINAL DISCOMFORT
  9. CORTISONE ACETATE [Concomitant]
     Indication: BLOOD PRESSURE ABNORMAL

REACTIONS (1)
  - BRONCHITIS [None]
